FAERS Safety Report 9405578 (Version 2)
Quarter: 2013Q3

REPORT INFORMATION
  Report Type: Spontaneous
  Country: RS (occurrence: None)
  Receive Date: 20130715
  Receipt Date: 20130723
  Transmission Date: 20140515
  Serious: No
  Sender: FDA-Public Use
  Company Number: 7222617

PATIENT
  Age: 2 Week
  Sex: Male

DRUGS (1)
  1. EUTHYROX [Suspect]
     Indication: AUTOIMMUNE THYROIDITIS
     Dosage: PRODUCT TAKEN BY MOTHER

REACTIONS (5)
  - Maternal drugs affecting foetus [None]
  - Diarrhoea neonatal [None]
  - Poor weight gain neonatal [None]
  - Exposure during breast feeding [None]
  - Muscle spasms [None]
